FAERS Safety Report 6234987-1 (Version None)
Quarter: 2009Q2

REPORT INFORMATION
  Report Type: 
  Country: None (occurrence: None)
  Receive Date: 20090618
  Receipt Date: 20090612
  Transmission Date: 20091009
  Serious: Yes (Hospitalization)
  Sender: FDA-Public Use
  Company Number: US-MYLANLABS-2009S1008469

PATIENT
  Age: 61 Year
  Sex: Female

DRUGS (8)
  1. AMLODIPINE BESYLATE [Suspect]
     Indication: HYPERTENSION
     Route: 048
     Dates: start: 20090322, end: 20090403
  2. AMLODIPINE BESYLATE [Suspect]
     Route: 048
     Dates: start: 20090404, end: 20090417
  3. IRON [Suspect]
     Indication: MINERAL SUPPLEMENTATION
     Dates: start: 20090401, end: 20090401
  4. POTASSIUM CHLORIDE [Concomitant]
  5. LASIX [Concomitant]
  6. PHENOBARBITAL TAB [Concomitant]
  7. ADVAIR HFA [Concomitant]
  8. TYLENOL (CAPLET) [Concomitant]

REACTIONS (11)
  - ABDOMINAL DISCOMFORT [None]
  - ABNORMAL DREAMS [None]
  - ANXIETY [None]
  - BLISTER [None]
  - CEREBRAL HAEMORRHAGE [None]
  - FLUSHING [None]
  - MUSCLE SPASMS [None]
  - PANIC ATTACK [None]
  - PRURITUS [None]
  - SKIN REACTION [None]
  - TINNITUS [None]
